FAERS Safety Report 6053948-9 (Version None)
Quarter: 2009Q1

REPORT INFORMATION
  Report Type: 
  Country: None (occurrence: None)
  Receive Date: 20090127
  Receipt Date: 20090121
  Transmission Date: 20090719
  Serious: Yes (Death)
  Sender: FDA-Public Use
  Company Number: FR-BAYER-200911369GPV

PATIENT
  Age: 62 Year
  Sex: Female
  Weight: 74 kg

DRUGS (42)
  1. FLUDARA [Suspect]
     Indication: STEM CELL TRANSPLANT
     Dosage: UNIT DOSE: 50 MG
     Route: 042
     Dates: start: 20081115, end: 20081119
  2. CIFLOX [Suspect]
     Indication: KLEBSIELLA INFECTION
     Route: 065
     Dates: start: 20081124, end: 20081128
  3. TREOSULFAN [Suspect]
     Indication: STEM CELL TRANSPLANT
     Route: 042
     Dates: start: 20081115, end: 20081117
  4. FASTURTEC [Suspect]
     Indication: PROPHYLAXIS
     Dosage: UNIT DOSE: 1.5 MG/ML
     Route: 042
     Dates: start: 20081114, end: 20081114
  5. METHOTREXATE [Suspect]
     Indication: PROPHYLAXIS AGAINST TRANSPLANT REJECTION
     Route: 065
     Dates: start: 20081122, end: 20081202
  6. TAZOCILLINE [Suspect]
     Indication: KLEBSIELLA INFECTION
     Dosage: TOTAL DAILY DOSE: 12 G
     Route: 065
     Dates: start: 20081120, end: 20081128
  7. ZYLORIC [Suspect]
     Indication: HYPERURICAEMIA
     Dosage: TOTAL DAILY DOSE: 600 MG  UNIT DOSE: 300 MG
     Route: 048
     Dates: start: 20081120
  8. INIPOMP [Suspect]
     Dosage: UNIT DOSE: 20 MG
     Route: 048
     Dates: start: 20081113
  9. TOPALGIC [Suspect]
     Route: 042
     Dates: start: 20081119
  10. THYMOGLOBULIN [Concomitant]
     Indication: STEM CELL TRANSPLANT
     Dosage: UNIT DOSE: 5 MG/ML
     Route: 065
     Dates: start: 20081119, end: 20081120
  11. CYCLOSPORINE [Concomitant]
     Indication: PROPHYLAXIS AGAINST TRANSPLANT REJECTION
     Route: 065
     Dates: start: 20081122, end: 20081202
  12. VFEND [Concomitant]
     Route: 065
     Dates: start: 20080701
  13. TERCIAN [Concomitant]
     Indication: DEPRESSION
     Route: 048
  14. ANAFRANIL [Concomitant]
     Indication: DEPRESSION
     Route: 048
  15. TEMESTA [Concomitant]
     Indication: DEPRESSION
     Dosage: TOTAL DAILY DOSE: 5 MG
     Route: 048
     Dates: start: 20081113
  16. NOCTRAN [Concomitant]
     Indication: DEPRESSION
     Route: 048
  17. TAREG [Concomitant]
     Indication: CARDIAC FAILURE
     Dosage: TOTAL DAILY DOSE: 80 MG
     Route: 048
  18. DETENSIEL [Concomitant]
     Indication: CARDIAC FAILURE
     Route: 048
  19. LASILIX [Concomitant]
     Indication: CARDIAC FAILURE
     Dates: start: 20081120, end: 20081124
  20. IMODIUM [Concomitant]
     Indication: DIARRHOEA
     Dosage: AS USED: 2 MG
     Route: 065
     Dates: start: 20081123
  21. FLAGYL [Concomitant]
     Indication: DIARRHOEA
     Route: 065
     Dates: start: 20081125
  22. CORDARONE [Concomitant]
     Indication: ARRHYTHMIA
     Dosage: TOTAL DAILY DOSE: 600 MG
     Route: 042
     Dates: start: 20081124, end: 20081128
  23. DIGOXIN [Concomitant]
     Indication: ARRHYTHMIA
     Route: 065
  24. ZOPHREN [Concomitant]
     Indication: PROPHYLAXIS
     Route: 065
     Dates: start: 20081115, end: 20081119
  25. FORLAX [Concomitant]
     Dosage: UNIT DOSE: 10 MG
     Route: 048
  26. VALIUM [Concomitant]
     Route: 065
     Dates: start: 20081101
  27. TIENAM [Concomitant]
     Indication: KLEBSIELLA INFECTION
     Route: 065
     Dates: start: 20081128
  28. ZYVOXID [Concomitant]
     Indication: KLEBSIELLA INFECTION
     Route: 065
     Dates: start: 20081128
  29. OMEPRAZOLE [Concomitant]
     Dosage: UNIT DOSE: 40 MG
     Route: 042
     Dates: start: 20081120
  30. OMEPRAZOLE [Concomitant]
     Dosage: TOTAL DAILY DOSE: 20 MG
     Route: 048
  31. DAFALGAN [Concomitant]
     Dosage: UNIT DOSE: 500 MG
     Route: 048
  32. BETAGAN [Concomitant]
     Dates: start: 20081113
  33. VITAMINE A DULCIS [Concomitant]
     Route: 065
     Dates: start: 20081113
  34. PRIMPERAN TAB [Concomitant]
     Indication: PROPHYLAXIS
     Route: 042
     Dates: start: 20081115, end: 20081119
  35. FUNGIZONE [Concomitant]
     Indication: PROPHYLAXIS
     Dosage: AS USED: 250 MG
     Route: 048
     Dates: start: 20081115
  36. VANCOMYCIN HCL [Concomitant]
     Route: 061
     Dates: start: 20081115
  37. POLARAMINE [Concomitant]
     Indication: PREMEDICATION
     Dosage: TOTAL DAILY DOSE: 10 MG
     Route: 065
     Dates: start: 20081119, end: 20081120
  38. SOLU-MEDROL [Concomitant]
     Indication: PREMEDICATION
     Dosage: TOTAL DAILY DOSE: 60 MG
     Route: 065
     Dates: start: 20081119, end: 20081120
  39. ZOVIRAX [Concomitant]
     Route: 042
     Dates: start: 20081122
  40. ALUMINUM HYDROXIDE AND MAGNESIUM TRISILICATE [Concomitant]
     Indication: DIARRHOEA
     Route: 065
     Dates: start: 20081123
  41. DOBUTREX [Concomitant]
     Indication: ARRHYTHMIA
     Route: 065
     Dates: start: 20081124, end: 20081128
  42. LOXEN [Concomitant]
     Route: 065
     Dates: start: 20081125

REACTIONS (1)
  - TOXIC EPIDERMAL NECROLYSIS [None]
